FAERS Safety Report 14102744 (Version 3)
Quarter: 2018Q1

REPORT INFORMATION
  Report Type: Spontaneous
  Country: US (occurrence: US)
  Receive Date: 20171018
  Receipt Date: 20180103
  Transmission Date: 20180508
  Serious: No
  Sender: FDA-Public Use
  Company Number: US-BAUSCH-BL-2017-026498

PATIENT
  Age: 79 Year
  Sex: Male

DRUGS (3)
  1. XENAZINE [Suspect]
     Active Substance: TETRABENAZINE
     Indication: TREMOR
     Route: 065
     Dates: start: 2009
  2. XENAZINE [Suspect]
     Active Substance: TETRABENAZINE
     Indication: CHOREA
     Route: 065
     Dates: start: 201706
  3. XENAZINE [Suspect]
     Active Substance: TETRABENAZINE
     Route: 048
     Dates: end: 20170919

REACTIONS (1)
  - Drug ineffective [Recovered/Resolved]

NARRATIVE: CASE EVENT DATE: 201706
